FAERS Safety Report 6634984-8 (Version None)
Quarter: 2010Q1

REPORT INFORMATION
  Report Type: 
  Country: None (occurrence: None)
  Receive Date: 20100312
  Receipt Date: 20100312
  Transmission Date: 20100710
  Serious: Yes (Hospitalization)
  Sender: FDA-Public Use
  Company Number: None

PATIENT
  Age: 71 Year
  Sex: Female
  Weight: 73 kg

DRUGS (12)
  1. ZOMETA [Suspect]
     Indication: BONE NEOPLASM MALIGNANT
     Dosage: 4 MG. MONTHLY IV
     Route: 042
     Dates: start: 20091203
  2. VELCADE/DEX [Concomitant]
  3. ZOFRAN [Concomitant]
  4. COMPAZINE [Concomitant]
  5. DEXAMETHASONE [Concomitant]
  6. AMLODIPINE [Concomitant]
  7. LASIX [Concomitant]
  8. LISINOPRIL [Concomitant]
  9. NOVOLOG [Concomitant]
  10. OXYCODONE HCL [Concomitant]
  11. OMEPRAZOLE [Concomitant]
  12. LANTUS [Concomitant]

REACTIONS (8)
  - ABDOMINAL DISTENSION [None]
  - ABDOMINAL TENDERNESS [None]
  - ADHESION [None]
  - BLOOD CREATININE INCREASED [None]
  - COMPUTERISED TOMOGRAM ABNORMAL [None]
  - CONSTIPATION [None]
  - INTESTINAL DILATATION [None]
  - OBSTRUCTION [None]
